FAERS Safety Report 15739381 (Version 2)
Quarter: 2019Q1

REPORT INFORMATION
  Report Type: Report from Study
  Country: DE (occurrence: DE)
  Receive Date: 20181219
  Receipt Date: 20190121
  Transmission Date: 20190417
  Serious: Yes (Other)
  Sender: FDA-Public Use
  Company Number: DE-UCBSA-2018041635

PATIENT
  Sex: Female

DRUGS (7)
  1. LACOSAMIDE. [Suspect]
     Active Substance: LACOSAMIDE
     Dosage: 150 MG DAILY
     Dates: start: 20180126, end: 20180131
  2. VALPROATE [Concomitant]
     Active Substance: VALPROIC ACID
     Indication: EPILEPSY
     Dosage: 1500 MG DAILY
     Dates: start: 201612, end: 201806
  3. LACOSAMIDE. [Suspect]
     Active Substance: LACOSAMIDE
     Dosage: 300 MG DAILY
     Dates: start: 20180210, end: 20181128
  4. LACOSAMIDE. [Suspect]
     Active Substance: LACOSAMIDE
     Dosage: 250 MG DAILY
     Dates: start: 20180207, end: 20180209
  5. LACOSAMIDE. [Suspect]
     Active Substance: LACOSAMIDE
     Indication: EPILEPSY
     Dosage: 50 MG DAILY
     Dates: start: 20180117, end: 20180121
  6. LACOSAMIDE. [Suspect]
     Active Substance: LACOSAMIDE
     Dosage: 100 MG DAILY
     Dates: start: 20180122, end: 20180125
  7. LACOSAMIDE. [Suspect]
     Active Substance: LACOSAMIDE
     Dosage: 200 MG DAILY
     Dates: start: 20180201, end: 20180206

REACTIONS (2)
  - Alopecia [Recovered/Resolved]
  - Extrasystoles [Unknown]

NARRATIVE: CASE EVENT DATE: 2018
